FAERS Safety Report 18030123 (Version 1)
Quarter: 2020Q3

REPORT INFORMATION
  Report Type: Report from Study
  Country: MX (occurrence: MX)
  Receive Date: 20200715
  Receipt Date: 20200715
  Transmission Date: 20201103
  Serious: Yes (Other)
  Sender: FDA-Public Use
  Company Number: MX-ANIPHARMA-2020-MX-000036

PATIENT
  Age: 58 Year
  Sex: Female

DRUGS (3)
  1. GLIBENCLAMIDE W/METFORMIN HYDROCHLORIDE [Concomitant]
     Active Substance: GLYBURIDE\METFORMIN HYDROCHLORIDE
     Dosage: DOSE TWO TIMES A DAY
     Route: 048
  2. METFORMIN [Concomitant]
     Active Substance: METFORMIN HYDROCHLORIDE
     Route: 048
  3. CANDESARTAN CILEXETIL. [Suspect]
     Active Substance: CANDESARTAN CILEXETIL
     Indication: HYPERTENSION
     Dosage: UNKNOWN DOSE / DOSE TEXT: UNKNOWN DOSE DAILY / DOSE TEXT: UNKNOWN DOSE TWO TIMES A DAY
     Route: 048
     Dates: start: 2016

REACTIONS (7)
  - Dyspepsia [Unknown]
  - Vision blurred [Not Recovered/Not Resolved]
  - Dry mouth [Not Recovered/Not Resolved]
  - Glaucoma [Unknown]
  - Self-medication [Unknown]
  - Dizziness [Not Recovered/Not Resolved]
  - Tachycardia [Unknown]

NARRATIVE: CASE EVENT DATE: 2019
